FAERS Safety Report 14967654 (Version 1)
Quarter: 2018Q2

REPORT INFORMATION
  Report Type: Spontaneous
  Country: US (occurrence: US)
  Receive Date: 20180604
  Receipt Date: 20180604
  Transmission Date: 20180711
  Serious: Yes (Other)
  Sender: FDA-Public Use
  Company Number: US-ZYDUS-020297

PATIENT
  Age: 25 Year
  Sex: Male

DRUGS (8)
  1. GABAPENTIN. [Concomitant]
     Active Substance: GABAPENTIN
     Indication: PRODUCT USED FOR UNKNOWN INDICATION
     Route: 065
  2. TIZANIDINE. [Concomitant]
     Active Substance: TIZANIDINE
     Indication: PRODUCT USED FOR UNKNOWN INDICATION
     Route: 065
  3. ONDANSETRON [Interacting]
     Active Substance: ONDANSETRON
     Indication: COMPLEX REGIONAL PAIN SYNDROME
     Route: 065
  4. DICLOFENAC [Concomitant]
     Active Substance: DICLOFENAC
     Indication: PRODUCT USED FOR UNKNOWN INDICATION
     Route: 065
  5. OXYCODONE/OXYCODONE HYDROCHLORIDE/OXYCODONE PECTINATE/OXYCODONE TEREPHTHALATE [Concomitant]
     Indication: PRODUCT USED FOR UNKNOWN INDICATION
     Route: 065
  6. LAMOTRIGINE. [Suspect]
     Active Substance: LAMOTRIGINE
     Indication: COMPLEX REGIONAL PAIN SYNDROME
     Route: 065
  7. ONDANSETRON [Interacting]
     Active Substance: ONDANSETRON
     Indication: NAUSEA
     Dosage: TOTAL OF FOUR DOSES OF 4MG IV ONDANSETRON IN THE FIRST TWO DAYS
     Route: 042
  8. DULOXETINE/DULOXETINE HYDROCHLORIDE [Interacting]
     Active Substance: DULOXETINE HYDROCHLORIDE
     Indication: COMPLEX REGIONAL PAIN SYNDROME
     Dosage: 30MG IN THE MORNING AND 60MG AT NIGHT
     Route: 065

REACTIONS (20)
  - Extradural abscess [None]
  - Diarrhoea [Recovered/Resolved]
  - Myalgia [Recovered/Resolved]
  - Drug interaction [Unknown]
  - Serotonin syndrome [Recovered/Resolved]
  - Agitation [Recovered/Resolved]
  - Tachypnoea [Recovered/Resolved]
  - Mania [None]
  - Nausea [Recovered/Resolved]
  - Hyperhidrosis [Recovered/Resolved]
  - Rash [Recovered/Resolved]
  - Clonus [Recovered/Resolved]
  - Confusional state [Recovered/Resolved]
  - Vomiting [Recovered/Resolved]
  - Pyrexia [Recovered/Resolved]
  - Feeling abnormal [Recovered/Resolved]
  - Dizziness [Recovered/Resolved]
  - Sinus tachycardia [Recovered/Resolved]
  - Headache [Recovered/Resolved]
  - Toxicity to various agents [None]
